FAERS Safety Report 5756729-6 (Version None)
Quarter: 2008Q2

REPORT INFORMATION
  Report Type: 
  Country: None (occurrence: None)
  Receive Date: 20080603
  Receipt Date: 20080522
  Transmission Date: 20081010
  Serious: Yes (Hospitalization)
  Sender: FDA-Public Use
  Company Number: US-ELI_LILLY_AND_COMPANY-US200805002562

PATIENT
  Sex: Male
  Weight: 49.89 kg

DRUGS (13)
  1. PEMETREXED [Suspect]
     Indication: NON-SMALL CELL LUNG CANCER
     Dosage: 500 MG/M2, OTHER
     Route: 042
     Dates: start: 20071203
  2. FOLIC ACID [Concomitant]
     Indication: SUPPLEMENTATION THERAPY
     Dates: start: 20071212
  3. VITAMIN B-12 [Concomitant]
     Indication: SUPPLEMENTATION THERAPY
     Dates: start: 20071212
  4. DEXAMETHASONE TAB [Concomitant]
     Dates: start: 20071208
  5. SINGULAIR [Concomitant]
     Indication: INHALATION THERAPY
  6. DUONEB [Concomitant]
     Indication: INHALATION THERAPY
  7. PROTONIX [Concomitant]
     Indication: DYSPEPSIA
  8. PREDNISONE TAB [Concomitant]
     Indication: INFLAMMATION
  9. MARINOL [Concomitant]
     Indication: DECREASED APPETITE
  10. CLARITIN [Concomitant]
     Indication: HYPERSENSITIVITY
  11. CEPHALEXIN [Concomitant]
     Indication: SINUSITIS
  12. PROMETHAZINE [Concomitant]
     Indication: NAUSEA
  13. TYLENOL                                 /SCH/ [Concomitant]
     Indication: PAIN

REACTIONS (3)
  - ASTHENIA [None]
  - CHRONIC OBSTRUCTIVE PULMONARY DISEASE [None]
  - HYPOMAGNESAEMIA [None]
